FAERS Safety Report 6917584-1 (Version None)
Quarter: 2010Q3

REPORT INFORMATION
  Report Type: 
  Country: None (occurrence: None)
  Receive Date: 20100810
  Receipt Date: 20100729
  Transmission Date: 20110219
  Serious: No
  Sender: FDA-Public Use
  Company Number: US-WYE-H15935110

PATIENT
  Sex: Female
  Weight: 64.47 kg

DRUGS (3)
  1. PROTONIX [Suspect]
     Route: 048
     Dates: start: 20000101, end: 20091201
  2. PROTONIX [Suspect]
     Dosage: UNKNOWN
     Dates: start: 20100716
  3. NEXIUM [Suspect]
     Indication: GASTROOESOPHAGEAL REFLUX DISEASE
     Dosage: UNKNOWN

REACTIONS (1)
  - DRUG EFFECT DECREASED [None]
